FAERS Safety Report 6183146-X (Version None)
Quarter: 2009Q2

REPORT INFORMATION
  Report Type: 
  Country: None (occurrence: None)
  Receive Date: 20090506
  Receipt Date: 20090422
  Transmission Date: 20091009
  Serious: Yes (Hospitalization)
  Sender: FDA-Public Use
  Company Number: URSO-2009-046

PATIENT
  Age: 45 Year
  Sex: Female

DRUGS (3)
  1. URSO (URSODEOXYCHOLIC ACID) 100MG [Suspect]
     Dosage: ORAL
     Route: 048
     Dates: start: 20090406
  2. PREDNISOLONE [Suspect]
     Dosage: ORAL
     Route: 048
     Dates: start: 20090406
  3. OMEPRAZOLE [Suspect]
     Dosage: ORAL
     Route: 048
     Dates: start: 20090406

REACTIONS (4)
  - ALANINE AMINOTRANSFERASE DECREASED [None]
  - ASPARTATE AMINOTRANSFERASE DECREASED [None]
  - AUTOIMMUNE HEPATITIS [None]
  - RASH PRURITIC [None]
